FAERS Safety Report 16067092 (Version 1)
Quarter: 2019Q1

REPORT INFORMATION
  Report Type: Spontaneous
  Country: IT (occurrence: IT)
  Receive Date: 20190313
  Receipt Date: 20190313
  Transmission Date: 20190418
  Serious: Yes (Hospitalization, Other)
  Sender: FDA-Public Use
  Company Number: IT-SA-2019SA066496

PATIENT
  Age: 26 Year
  Sex: Female

DRUGS (2)
  1. INSULIN LISPRO [Suspect]
     Active Substance: INSULIN LISPRO
     Indication: TYPE 1 DIABETES MELLITUS
     Dosage: 4 IU, AT EACH MEAL
  2. INSULIN GLARGINE [Suspect]
     Active Substance: INSULIN GLARGINE
     Indication: TYPE 1 DIABETES MELLITUS
     Dosage: UNK

REACTIONS (5)
  - Exposure during pregnancy [Unknown]
  - Diabetes mellitus inadequate control [Recovering/Resolving]
  - Mitral valve stenosis [Unknown]
  - Blood glucose fluctuation [Recovering/Resolving]
  - Hypoglycaemia [Unknown]
